FAERS Safety Report 8881174 (Version 1)
Quarter: 2012Q4

REPORT INFORMATION
  Report Type: 
  Country: US (occurrence: US)
  Receive Date: 20121031
  Receipt Date: 20121031
  Transmission Date: 20130627
  Serious: Yes (Hospitalization, Other)
  Sender: FDA-Public Use
  Company Number: PHEH2012US014991

PATIENT
  Age: 54 Year
  Sex: Male

DRUGS (4)
  1. TOBI [Suspect]
     Indication: CYSTIC FIBROSIS
     Dosage: 300 mg, BID
     Dates: start: 20120605
  2. PULMOZYME [Concomitant]
     Dosage: UNK UKN, UNK
  3. ADVAIR [Concomitant]
     Dosage: UNK UKN, UNK
  4. ALBUTEROL [Concomitant]
     Dosage: UNK UKN, UNK

REACTIONS (11)
  - Lung infection [Not Recovered/Not Resolved]
  - Speech disorder [Not Recovered/Not Resolved]
  - Asthma [Not Recovered/Not Resolved]
  - Respiratory tract irritation [Not Recovered/Not Resolved]
  - Cough [Recovering/Resolving]
  - Dyspnoea [Recovering/Resolving]
  - Deafness unilateral [Recovering/Resolving]
  - Dizziness [Recovering/Resolving]
  - Drug effect incomplete [Unknown]
  - Tinnitus [Recovering/Resolving]
  - Rash [Recovering/Resolving]
